FAERS Safety Report 13752429 (Version 3)
Quarter: 2018Q3

REPORT INFORMATION
  Report Type: Report from Study
  Country: US (occurrence: US)
  Receive Date: 20170713
  Receipt Date: 20180705
  Transmission Date: 20181010
  Serious: Yes (Other)
  Sender: FDA-Public Use
  Company Number: US-JAZZ-2017-US-006344

PATIENT
  Sex: Female

DRUGS (9)
  1. CALCIUM ANTACID [Concomitant]
     Active Substance: CALCIUM CARBONATE
  2. PROZAC [Concomitant]
     Active Substance: FLUOXETINE HYDROCHLORIDE
  3. ADVAIR HFA [Concomitant]
     Active Substance: FLUTICASONE PROPIONATE\SALMETEROL XINAFOATE
  4. DUONEB [Concomitant]
     Active Substance: ALBUTEROL SULFATE\IPRATROPIUM BROMIDE
  5. XYREM [Suspect]
     Active Substance: SODIUM OXYBATE
     Indication: NARCOLEPSY
     Dosage: 2.25 G, BID
     Route: 048
     Dates: start: 201701
  6. ZYRTEC [Concomitant]
     Active Substance: CETIRIZINE HYDROCHLORIDE
  7. BIOTIN [Concomitant]
     Active Substance: BIOTIN
  8. VITAMIN B C COMPLEX [Concomitant]
  9. GLUCOSAMINE SULFATE + CHONDROITIN [Concomitant]

REACTIONS (5)
  - Sleep apnoea syndrome [Unknown]
  - Blood pressure increased [Unknown]
  - Seizure [Not Recovered/Not Resolved]
  - Seasonal allergy [Unknown]
  - Asthma-chronic obstructive pulmonary disease overlap syndrome [Not Recovered/Not Resolved]

NARRATIVE: CASE EVENT DATE: 2017
